FAERS Safety Report 14946291 (Version 1)
Quarter: 2018Q2

REPORT INFORMATION
  Report Type: Spontaneous
  Country: US (occurrence: US)
  Receive Date: 20180529
  Receipt Date: 20180529
  Transmission Date: 20180711
  Serious: Yes (Hospitalization, Disabling)
  Sender: FDA-Public Use
  Company Number: US-JNJFOC-20180531632

PATIENT
  Age: 43 Year
  Sex: Male

DRUGS (1)
  1. INVOKANA [Suspect]
     Active Substance: CANAGLIFLOZIN
     Indication: TYPE 2 DIABETES MELLITUS
     Route: 048
     Dates: start: 20150615

REACTIONS (6)
  - Leg amputation [Recovering/Resolving]
  - Leg amputation [Recovering/Resolving]
  - Gangrene [Recovering/Resolving]
  - Peripheral ischaemia [Recovering/Resolving]
  - Impaired healing [Recovering/Resolving]
  - Toe amputation [Recovering/Resolving]

NARRATIVE: CASE EVENT DATE: 201612
